FAERS Safety Report 8055939-5 (Version None)
Quarter: 2012Q1

REPORT INFORMATION
  Report Type: 
  Country: None (occurrence: None)
  Receive Date: 20120119
  Receipt Date: 20120110
  Transmission Date: 20120608
  Serious: Yes (Other)
  Sender: FDA-Public Use
  Company Number: JP-CTI_01435_2012

PATIENT
  Age: 10 Year

DRUGS (2)
  1. MEIACT MS - CEFDITOREN PIVOXIL [Suspect]
     Indication: PRODUCT USED FOR UNKNOWN INDICATION
     Dosage: DAILY DOSE UNKNOWN
     Route: 048
  2. MINOCYCLINE HYDROCHLORIDE [Concomitant]
     Indication: PRODUCT USED FOR UNKNOWN INDICATION
     Dosage: DF
     Route: 042

REACTIONS (3)
  - CONDITION AGGRAVATED [None]
  - PNEUMONIA MYCOPLASMAL [None]
  - HAEMOLYTIC ANAEMIA [None]
